FAERS Safety Report 8323151-8 (Version None)
Quarter: 2012Q2

REPORT INFORMATION
  Report Type: 
  Country: None (occurrence: None)
  Receive Date: 20120430
  Receipt Date: 20120420
  Transmission Date: 20120825
  Serious: Yes (Hospitalization)
  Sender: FDA-Public Use
  Company Number: US-OPTIMER-20120031

PATIENT
  Sex: Female
  Weight: 74.83 kg

DRUGS (16)
  1. LIDOCAINE [Concomitant]
     Dosage: UNK
  2. PHENERGAN [Concomitant]
     Dosage: UNK
  3. VANCOMYCIN [Concomitant]
     Indication: DIARRHOEA
     Dosage: 250 MG, TID
     Route: 048
     Dates: start: 20120101, end: 20120201
  4. VICODIN [Concomitant]
     Indication: PAIN MANAGEMENT
     Dosage: UNK UNK, PRN
     Route: 048
  5. DIFICID [Suspect]
     Indication: CLOSTRIDIUM DIFFICILE COLITIS
     Dosage: 200 MG, BID
     Route: 048
     Dates: start: 20120101, end: 20120101
  6. LYRICA [Concomitant]
     Indication: NECK PAIN
     Dosage: 150 MG, BID
     Route: 048
  7. DIFICID [Suspect]
     Dosage: 200 MG, BID
     Route: 048
     Dates: start: 20120301, end: 20120310
  8. VERAPAMIL [Concomitant]
     Dosage: UNK
     Route: 048
  9. ESTRADIOL [Concomitant]
     Indication: HORMONE THERAPY
     Dosage: 1 MG, QD
     Route: 048
  10. OXYCODONE HCL [Concomitant]
     Indication: PAIN MANAGEMENT
     Dosage: UNK, PRN
     Route: 048
  11. TRAZODONE HCL [Concomitant]
     Dosage: UNK
  12. CITALOPRAM [Concomitant]
     Indication: ANXIETY
     Dosage: 20 MG, QD
     Route: 048
     Dates: start: 20111201
  13. HYDROCORT [Concomitant]
     Indication: ARTHRALGIA
     Dosage: UNK
     Dates: start: 20120101
  14. NAPROXEN (ALEVE) [Concomitant]
     Indication: PAIN MANAGEMENT
     Dosage: UNK UNK, PRN
     Route: 048
  15. FLAGYL [Concomitant]
     Indication: DIARRHOEA
     Dosage: UNK
     Dates: start: 20120101, end: 20120101
  16. CITALOPRAM [Concomitant]
     Indication: DEPRESSION

REACTIONS (11)
  - HYPERPARATHYROIDISM [None]
  - EOSINOPHILIA [None]
  - URINARY RETENTION [None]
  - CONSTIPATION [None]
  - ADRENAL INSUFFICIENCY [None]
  - ABDOMINAL PAIN LOWER [None]
  - VITAMIN D DEFICIENCY [None]
  - DECREASED APPETITE [None]
  - HYPOTHYROIDISM [None]
  - ARTHRALGIA [None]
  - FATIGUE [None]
